FAERS Safety Report 4823329-1 (Version None)
Quarter: 2005Q4

REPORT INFORMATION
  Report Type: 
  Country: None (occurrence: None)
  Receive Date: 20051107
  Receipt Date: 20051026
  Transmission Date: 20060501
  Serious: Yes (Life-Threatening, Hospitalization, Other)
  Sender: FDA-Public Use
  Company Number: 2005142636

PATIENT
  Age: 79 Year
  Sex: Male
  Weight: 59.2 kg

DRUGS (16)
  1. SULPERAZON (SULBACTAM, CEFOPERAZONE) [Suspect]
     Indication: CHOLECYSTITIS
     Dosage: 2 GRAM (1 GRAM, 2 IN 1 D), INTRAVENOUS
     Route: 042
     Dates: start: 20051012, end: 20051012
  2. HUMULIN R [Suspect]
     Indication: DIABETES MELLITUS
     Dosage: 5 UNITS, INTRAVENOUS
     Route: 042
     Dates: start: 20051012, end: 20051012
  3. NOVORAPID (INSULIN ASPART) [Concomitant]
  4. BASEN (VOGLIBOSE) [Concomitant]
  5. RABEPRAZOLE SODIUM [Concomitant]
  6. GASCON (DIMETICONE) [Concomitant]
  7. ANPLAG (SARPOGRELATE HYDROCHLORIDE) [Concomitant]
  8. POLAPREZINC (POLAPREZINC) [Concomitant]
  9. ETODOLAC [Concomitant]
  10. TALION (BEPOTASTINE BESILATE) [Concomitant]
  11. HARNAL (TAMSULOSIN HYDROCHLORIDE) [Concomitant]
  12. DIOVANE (VALSARTAN) [Concomitant]
  13. AMLODIPINE [Concomitant]
  14. DAI-KENCHU-TO (DRUG,) [Concomitant]
  15. GLAKAY (MENATETRENONE) [Concomitant]
  16. VEEN D (CALCIUM CHLORIDE DIHYDRATE, GLUCOSE, POTASSIUM CHLORIDE, SODIU [Concomitant]

REACTIONS (18)
  - ANAL DISCOMFORT [None]
  - ANAPHYLACTIC SHOCK [None]
  - BLOOD BILIRUBIN INCREASED [None]
  - BLOOD PRESSURE SYSTOLIC DECREASED [None]
  - BRADYCARDIA [None]
  - CHOKING SENSATION [None]
  - CYANOSIS [None]
  - DEPRESSED LEVEL OF CONSCIOUSNESS [None]
  - FEELING COLD [None]
  - HYPERHIDROSIS [None]
  - JAUNDICE [None]
  - LOSS OF CONSCIOUSNESS [None]
  - NASAL DISCOMFORT [None]
  - OXYGEN SATURATION DECREASED [None]
  - RESPIRATORY ARREST [None]
  - RESTLESSNESS [None]
  - THROAT IRRITATION [None]
  - VOMITING [None]
